FAERS Safety Report 9543042 (Version 1)
Quarter: 2013Q3

REPORT INFORMATION
  Report Type: Spontaneous
  Country: GB (occurrence: GB)
  Receive Date: 20130923
  Receipt Date: 20130923
  Transmission Date: 20140515
  Serious: Yes (Hospitalization)
  Sender: FDA-Public Use
  Company Number: PHHY2013GB102407

PATIENT
  Age: 66 Year
  Sex: Female

DRUGS (5)
  1. LANSOPRAZOLE [Suspect]
     Dosage: UNK
  2. LAMOTRIGINE [Suspect]
     Dosage: 100 MG, QID
     Route: 048
     Dates: end: 201307
  3. ASPIRIN [Concomitant]
  4. LACTULOSE [Concomitant]
  5. PARACETAMOL [Concomitant]

REACTIONS (1)
  - Hyponatraemia [Recovering/Resolving]
